FAERS Safety Report 23594061 (Version 1)
Quarter: 2024Q1

REPORT INFORMATION
  Report Type: Spontaneous
  Country: US (occurrence: US)
  Receive Date: 20240305
  Receipt Date: 20240305
  Transmission Date: 20240410
  Serious: No
  Sender: FDA-Public Use
  Company Number: US-TPU-TPU-2024-00065

PATIENT
  Age: 58 Year
  Sex: Female
  Weight: 136.08 kg

DRUGS (1)
  1. LIDOCAINE [Suspect]
     Active Substance: LIDOCAINE
     Indication: Back pain
     Dates: start: 202004

REACTIONS (3)
  - Muscle strain [Unknown]
  - Expired product administered [Unknown]
  - Pain [Unknown]

NARRATIVE: CASE EVENT DATE: 20231201
